FAERS Safety Report 7996634-8 (Version None)
Quarter: 2011Q4

REPORT INFORMATION
  Report Type: 
  Country: None (occurrence: None)
  Receive Date: 20111221
  Receipt Date: 20111209
  Transmission Date: 20120403
  Serious: Yes (Hospitalization)
  Sender: FDA-Public Use
  Company Number: US-PAR PHARMACEUTICAL, INC-2011SCPR003489

PATIENT

DRUGS (3)
  1. ACETAMINOPHEN [Suspect]
     Indication: PRODUCT USED FOR UNKNOWN INDICATION
     Dosage: 12 DF, UNKNOWN
     Route: 048
  2. MIDOL COMPLETE CAPLETS [Suspect]
     Indication: PRODUCT USED FOR UNKNOWN INDICATION
     Dosage: 30 TABLETS (MEPYRAMINE 15MG, CAFFEINE 60MG AND PARACETAMOL 500MG)
     Route: 048
  3. IBUPROFEN [Suspect]
     Indication: PRODUCT USED FOR UNKNOWN INDICATION
     Dosage: UNK UNK, UNKNOWN
     Route: 048

REACTIONS (10)
  - SUICIDE ATTEMPT [None]
  - ANXIETY [None]
  - BLOOD GLUCOSE INCREASED [None]
  - PALPITATIONS [None]
  - BASE EXCESS [None]
  - ELECTROCARDIOGRAM QT PROLONGED [None]
  - DEPRESSED MOOD [None]
  - BLOOD LACTIC ACID INCREASED [None]
  - MULTIPLE DRUG OVERDOSE [None]
  - CHILLS [None]
